FAERS Safety Report 11241235 (Version 1)
Quarter: 2015Q3

REPORT INFORMATION
  Report Type: Spontaneous
  Country: US (occurrence: US)
  Receive Date: 20150706
  Receipt Date: 20150706
  Transmission Date: 20151125
  Serious: Yes (Hospitalization, Other)
  Sender: FDA-Public Use
  Company Number: US-VIIV HEALTHCARE LIMITED-US2015GSK087968

PATIENT
  Sex: Male

DRUGS (1)
  1. TRIUMEQ [Suspect]
     Active Substance: ABACAVIR SULFATE\DOLUTEGRAVIR SODIUM\LAMIVUDINE
     Indication: HIV INFECTION
     Dosage: UNK, QD
     Dates: start: 201502

REACTIONS (6)
  - Abasia [Unknown]
  - Pain in extremity [Unknown]
  - Guillain-Barre syndrome [Recovering/Resolving]
  - Hypoaesthesia [Unknown]
  - Rehabilitation therapy [Recovering/Resolving]
  - Muscular weakness [Recovering/Resolving]
